FAERS Safety Report 25362606 (Version 1)
Quarter: 2025Q2

REPORT INFORMATION
  Report Type: Spontaneous
  Country: US (occurrence: None)
  Receive Date: 20250523
  Receipt Date: 20250523
  Transmission Date: 20250717
  Serious: Yes (Hospitalization, Disabling, Other)
  Sender: FDA-CTU
  Company Number: None

PATIENT
  Age: 65 Year
  Sex: Female
  Weight: 84.6 kg

DRUGS (3)
  1. WEGOVY [Suspect]
     Active Substance: SEMAGLUTIDE
     Route: 050
     Dates: start: 20250218, end: 20250408
  2. FIONAL [Concomitant]
  3. NAPROSYN [Concomitant]
     Active Substance: NAPROXEN

REACTIONS (1)
  - Blindness unilateral [None]

NARRATIVE: CASE EVENT DATE: 20250412
